FAERS Safety Report 6354358-7 (Version None)
Quarter: 2009Q3

REPORT INFORMATION
  Report Type: 
  Country: None (occurrence: None)
  Receive Date: 20090914
  Receipt Date: 20090908
  Transmission Date: 20100115
  Serious: Yes (Life-Threatening, Hospitalization)
  Sender: FDA-Public Use
  Company Number: ES-BIOGENIDEC-2009BI027858

PATIENT
  Age: 49 Year
  Sex: Female
  Weight: 60 kg

DRUGS (2)
  1. TYSABRI [Suspect]
     Indication: RELAPSING-REMITTING MULTIPLE SCLEROSIS
     Route: 030
     Dates: start: 20080201, end: 20090301
  2. DEZACOR [Concomitant]
     Dates: start: 20090101, end: 20090101

REACTIONS (4)
  - DRUG INEFFECTIVE [None]
  - HYPOGAMMAGLOBULINAEMIA [None]
  - MALAISE [None]
  - PROGRESSIVE MULTIFOCAL LEUKOENCEPHALOPATHY [None]
